FAERS Safety Report 4366556-2 (Version None)
Quarter: 2004Q2

REPORT INFORMATION
  Report Type: 
  Country: None (occurrence: None)
  Receive Date: 20040527
  Receipt Date: 20030407
  Transmission Date: 20050107
  Serious: Yes (Hospitalization, Other)
  Sender: FDA-Public Use
  Company Number: US-MERCK-0304USA00762

PATIENT
  Age: 50 Year
  Sex: Male
  Weight: 109 kg

DRUGS (7)
  1. ASPIRIN [Concomitant]
     Route: 065
  2. ATENOLOL [Concomitant]
     Route: 065
  3. GLYBURIDE [Concomitant]
     Route: 065
     Dates: start: 19920101
  4. MOTRIN [Concomitant]
     Route: 065
     Dates: start: 19970101
  5. PRINIVIL [Concomitant]
     Route: 048
  6. VIOXX [Suspect]
     Indication: BACK PAIN
     Route: 048
     Dates: start: 20010616, end: 20010801
  7. ZOCOR [Concomitant]
     Route: 048

REACTIONS (3)
  - CARDIAC DISORDER [None]
  - DEPRESSION [None]
  - HEART INJURY [None]
